FAERS Safety Report 10487640 (Version 1)
Quarter: 2014Q4

REPORT INFORMATION
  Report Type: Spontaneous
  Country: US (occurrence: US)
  Receive Date: 20141001
  Receipt Date: 20141001
  Transmission Date: 20150528
  Serious: Yes (Other)
  Sender: FDA-Public Use
  Company Number: US-ASTRAZENECA-2014SE72602

PATIENT
  Age: 53 Year
  Sex: Female

DRUGS (12)
  1. BRILINTA [Suspect]
     Active Substance: TICAGRELOR
     Indication: ACUTE CORONARY SYNDROME
     Route: 048
     Dates: start: 20140923
  2. APIDRA SOLOSTAR [Concomitant]
     Active Substance: INSULIN GLULISINE
     Dosage: 100
  3. CARVEDILOL. [Concomitant]
     Active Substance: CARVEDILOL
  4. NITROSTAT [Concomitant]
     Active Substance: NITROGLYCERIN
     Route: 060
  5. BENECAR [Concomitant]
     Dosage: 40
     Route: 048
  6. GLIMEPIRIDE. [Concomitant]
     Active Substance: GLIMEPIRIDE
     Dosage: 4
  7. LEVEMIR [Concomitant]
     Active Substance: INSULIN DETEMIR
  8. BRILINTA [Suspect]
     Active Substance: TICAGRELOR
     Indication: ACUTE CORONARY SYNDROME
     Route: 048
     Dates: start: 20140922, end: 20140922
  9. B COMPLEX VITAMIN [Concomitant]
     Dosage: 50
  10. HYDROCHLOROTHIAZIDE. [Concomitant]
     Active Substance: HYDROCHLOROTHIAZIDE
     Route: 048
  11. CRESTOR [Suspect]
     Active Substance: ROSUVASTATIN CALCIUM
     Route: 048
  12. ENTERIC COATED ASPIRIN [Concomitant]
     Active Substance: ASPIRIN

REACTIONS (1)
  - Eye haemorrhage [Unknown]

NARRATIVE: CASE EVENT DATE: 201409
